FAERS Safety Report 25985764 (Version 1)
Quarter: 2025Q4

REPORT INFORMATION
  Report Type: Spontaneous
  Country: EU (occurrence: EU)
  Receive Date: 20251031
  Receipt Date: 20251031
  Transmission Date: 20260117
  Serious: Yes (Other)
  Sender: AMGEN
  Company Number: EU-AMGEN-ESPSP2025215682

PATIENT

DRUGS (2)
  1. ADALIMUMAB [Suspect]
     Active Substance: ADALIMUMAB
     Indication: Uveitis
     Dosage: 40 MG OR 20 MG, Q2WK
     Route: 058
  2. ETANERCEPT [Suspect]
     Active Substance: ETANERCEPT
     Indication: Uveitis
     Dosage: UNK
     Route: 065

REACTIONS (15)
  - Uveitis [Unknown]
  - Erectile dysfunction [Unknown]
  - Infection [Unknown]
  - Fatigue [Unknown]
  - Headache [Unknown]
  - Swelling [Unknown]
  - Injection site haematoma [Unknown]
  - Abdominal pain [Unknown]
  - Weight decreased [Unknown]
  - Limb discomfort [Unknown]
  - Depression [Unknown]
  - Therapy non-responder [Unknown]
  - Drug level decreased [Unknown]
  - Drug specific antibody present [Unknown]
  - Off label use [Unknown]
